FAERS Safety Report 13208142 (Version 1)
Quarter: 2017Q1

REPORT INFORMATION
  Report Type: Spontaneous
  Country: US (occurrence: US)
  Receive Date: 20170209
  Receipt Date: 20170209
  Transmission Date: 20170428
  Serious: No
  Sender: FDA-Public Use
  Company Number: US-ROCHE-1137536

PATIENT
  Sex: Male

DRUGS (11)
  1. LIOTHYRONINE SODIUM. [Concomitant]
     Active Substance: LIOTHYRONINE SODIUM
  2. NUTROPIN AQ [Suspect]
     Active Substance: SOMATROPIN
     Indication: BLOOD GROWTH HORMONE DECREASED
     Route: 058
  3. VITAMIN C [Concomitant]
     Active Substance: ASCORBIC ACID
  4. NUTROPIN AQ [Suspect]
     Active Substance: SOMATROPIN
     Route: 058
  5. NUTROPIN AQ [Suspect]
     Active Substance: SOMATROPIN
     Route: 058
  6. TESTOSTERONE. [Concomitant]
     Active Substance: TESTOSTERONE
  7. NUTROPIN AQ [Suspect]
     Active Substance: SOMATROPIN
     Indication: HYPOTHALAMO-PITUITARY DISORDER
     Route: 058
  8. NUTROPIN AQ [Suspect]
     Active Substance: SOMATROPIN
     Route: 058
  9. LEVOTHYROXINE. [Concomitant]
     Active Substance: LEVOTHYROXINE
     Route: 065
  10. DHEA [Concomitant]
     Active Substance: PRASTERONE
     Dosage: 2 CAPS 2 X DAY
     Route: 065
  11. VITAMIN B COMPLEX [Concomitant]
     Active Substance: CYANOCOBALAMIN\DEXPANTHENOL\NIACINAMIDE\PYRIDOXINE HYDROCHLORIDE\RIBOFLAVIN 5^-PHOSPHATE SODIUM\THIAMINE HYDROCHLORIDE\VITAMIN B COMPLEX

REACTIONS (6)
  - Malaise [Unknown]
  - Device issue [Unknown]
  - Insulin-like growth factor decreased [Not Recovered/Not Resolved]
  - Atypical pneumonia [Unknown]
  - Low density lipoprotein increased [Not Recovered/Not Resolved]
  - Asthenia [Not Recovered/Not Resolved]
